FAERS Safety Report 4332240-4 (Version None)
Quarter: 2004Q1

REPORT INFORMATION
  Report Type: 
  Country: None (occurrence: None)
  Receive Date: 20040329
  Receipt Date: 20040316
  Transmission Date: 20041129
  Serious: Yes (Hospitalization)
  Sender: FDA-Public Use
  Company Number: 2004018235

PATIENT
  Age: 51 Year
  Sex: Female
  Weight: 63.05 kg

DRUGS (2)
  1. LIPITOR [Suspect]
     Indication: BLOOD CHOLESTEROL INCREASED
     Dosage: 20 MG (DAILY), ORAL
     Route: 048
     Dates: end: 20031101
  2. THYROID TAB [Concomitant]

REACTIONS (9)
  - DIZZINESS [None]
  - EYE DISORDER [None]
  - FATIGUE [None]
  - FEELING ABNORMAL [None]
  - LIMB IMMOBILISATION [None]
  - MUSCULAR WEAKNESS [None]
  - MYALGIA [None]
  - PARAESTHESIA [None]
  - SENSATION OF HEAVINESS [None]
